FAERS Safety Report 9095173 (Version 1)
Quarter: 2013Q1

REPORT INFORMATION
  Report Type: Spontaneous
  Country: US (occurrence: None)
  Receive Date: 20130122
  Receipt Date: 20130122
  Transmission Date: 20140127
  Serious: Yes (Death, Other)
  Sender: FDA-Public Use
  Company Number: AXC-2013-000022

PATIENT
  Age: 76 Year
  Sex: Male

DRUGS (1)
  1. SCANDISHAKE [Suspect]
     Indication: MEDICAL DIET
     Route: 048
     Dates: end: 2010

REACTIONS (3)
  - Cerebral atrophy [None]
  - Multiple system atrophy [None]
  - Dysphagia [None]
